FAERS Safety Report 16922787 (Version 1)
Quarter: 2020Q3

REPORT INFORMATION
  Report Type: Other
  Country: DE (occurrence: DE)
  Receive Date: 20191016
  Receipt Date: 20191016
  Transmission Date: 20201105
  Serious: Yes (Other)
  Sender: FDA-Public Use
  Company Number: DE-CELLTRION INC.-2019DE025480

PATIENT

DRUGS (10)
  1. AZATHIOPRINE. [Suspect]
     Active Substance: AZATHIOPRINE
     Indication: DIFFUSE LARGE B-CELL LYMPHOMA
     Dosage: 1ST LINE, R?CHOEP + 2R +HD?MTX 8 CYCLES
     Route: 065
     Dates: start: 20171214, end: 20180324
  2. RITUXIMAB (UNKNOWN) [Suspect]
     Active Substance: RITUXIMAB
     Indication: DIFFUSE LARGE B-CELL LYMPHOMA
     Dosage: 1ST LINE, R?CHOEP + 2R +HD?MTX 8 CYCLES
     Route: 065
     Dates: start: 20171214, end: 20180324
  3. RITUXIMAB (UNKNOWN) [Suspect]
     Active Substance: RITUXIMAB
     Dosage: 2ND LINE, R?BEAM
     Route: 065
     Dates: start: 20190221
  4. RITUXIMAB (UNKNOWN) [Suspect]
     Active Substance: RITUXIMAB
     Dosage: 2ND LINE, 2 R?DHAP
     Route: 065
     Dates: start: 20190102, end: 20190124
  5. CYCLOPHOSPHAMIDE. [Suspect]
     Active Substance: CYCLOPHOSPHAMIDE
     Indication: DIFFUSE LARGE B-CELL LYMPHOMA
     Dosage: 1ST LINE, R?CHOEP + 2R +HD?MTX 8 CYCLES
     Route: 065
     Dates: start: 20171214, end: 20180324
  6. DEXAMETHASONE. [Suspect]
     Active Substance: DEXAMETHASONE
     Indication: DIFFUSE LARGE B-CELL LYMPHOMA
     Dosage: 1ST LINE, R?CHOEP + 2R +HD?MTX 8 CYCLES
     Route: 065
     Dates: start: 20171214, end: 20180324
  7. METHOTREXATE. [Suspect]
     Active Substance: METHOTREXATE
     Indication: DIFFUSE LARGE B-CELL LYMPHOMA
     Dosage: 1ST LINE, R?CHOEP + 2R +HD?MTX 8 CYCLES
     Route: 065
     Dates: start: 20171214, end: 20180324
  8. BENDAMUSTINE [Suspect]
     Active Substance: BENDAMUSTINE
     Indication: DIFFUSE LARGE B-CELL LYMPHOMA
     Dosage: 1ST LINE, R?CHOEP + 2R +HD?MTX 8 CYCLES
     Route: 065
     Dates: start: 20171214, end: 20180324
  9. THALIDOMIDE [Suspect]
     Active Substance: THALIDOMIDE
     Indication: DIFFUSE LARGE B-CELL LYMPHOMA
     Dosage: 1ST LINE, R?CHOEP + 2R +HD?MTX 8 CYCLES
     Route: 065
     Dates: start: 20171214, end: 20180324
  10. POLATUZUMAB VEDOTIN. [Suspect]
     Active Substance: POLATUZUMAB VEDOTIN
     Indication: DIFFUSE LARGE B-CELL LYMPHOMA
     Dosage: 1ST LINE, R?CHOEP + 2R +HD?MTX 8 CYCLES
     Route: 065
     Dates: start: 20171214, end: 20180324

REACTIONS (2)
  - Activated partial thromboplastin time prolonged [Unknown]
  - Thrombocytopenia [Unknown]
